FAERS Safety Report 15245822 (Version 1)
Quarter: 2018Q3

REPORT INFORMATION
  Report Type: Spontaneous
  Country: GB (occurrence: GB)
  Receive Date: 20180806
  Receipt Date: 20180806
  Transmission Date: 20181010
  Serious: Yes (Other)
  Sender: FDA-Public Use
  Company Number: GB-TEVA-2018-GB-935898

PATIENT
  Age: 73 Year
  Sex: Female

DRUGS (2)
  1. DEXAMETHASONE. [Suspect]
     Active Substance: DEXAMETHASONE
     Indication: PLASMA CELL MYELOMA
     Dosage: NOT PROVIDED
     Route: 065
  2. REVLIMID [Suspect]
     Active Substance: LENALIDOMIDE
     Indication: PLASMA CELL MYELOMA
     Dosage: NOT PROVIDED
     Route: 048

REACTIONS (6)
  - Abdominal distension [Not Recovered/Not Resolved]
  - Renal failure [Recovered/Resolved]
  - Orthostatic hypotension [Recovered/Resolved]
  - Blood alkaline phosphatase increased [Recovered/Resolved]
  - Alanine aminotransferase increased [Recovered/Resolved]
  - Balance disorder [Not Recovered/Not Resolved]

NARRATIVE: CASE EVENT DATE: 20160615
